FAERS Safety Report 5194339-2 (Version None)
Quarter: 2006Q4

REPORT INFORMATION
  Report Type: 
  Country: None (occurrence: None)
  Receive Date: 20061228
  Receipt Date: 20060208
  Transmission Date: 20070319
  Serious: Yes (Other)
  Sender: FDA-Public Use
  Company Number: US-SHR-US-2006-002412

PATIENT
  Age: 50 Year
  Sex: Female
  Weight: 91 kg

DRUGS (1)
  1. GM-CSF (N/A) [Suspect]
     Indication: MALIGNANT MELANOMA
     Dosage: 250 A?G, 14 DAYS ON, 14 DAYS OFF
     Route: 058
     Dates: start: 20010802, end: 20040601

REACTIONS (2)
  - MULTIPLE SCLEROSIS [None]
  - NUCLEAR MAGNETIC RESONANCE IMAGING BRAIN ABNORMAL [None]
